FAERS Safety Report 21822924 (Version 6)
Quarter: 2023Q2

REPORT INFORMATION
  Report Type: Report from Study
  Country: CA (occurrence: CA)
  Receive Date: 20230105
  Receipt Date: 20230531
  Transmission Date: 20230721
  Serious: Yes (Death, Hospitalization, Other)
  Sender: FDA-Public Use
  Company Number: CA-TAKEDA-2023TUS000410

PATIENT
  Age: 84 Year
  Sex: Male

DRUGS (10)
  1. VEDOLIZUMAB [Suspect]
     Active Substance: VEDOLIZUMAB
     Indication: Crohn^s disease
     Dosage: 300 MILLIGRAM
     Route: 042
     Dates: start: 20221213
  2. VEDOLIZUMAB [Suspect]
     Active Substance: VEDOLIZUMAB
     Dosage: 300 MILLIGRAM
     Route: 042
  3. VEDOLIZUMAB [Suspect]
     Active Substance: VEDOLIZUMAB
     Dosage: 300 MILLIGRAM
     Route: 042
  4. XARELTO [Concomitant]
     Active Substance: RIVAROXABAN
     Dosage: 500 MILLIGRAM
     Route: 048
  5. PENTASA [Concomitant]
     Active Substance: MESALAMINE
     Dosage: 1 GRAM
     Route: 048
  6. PANTOPRAZOLE [Concomitant]
     Active Substance: PANTOPRAZOLE
     Dosage: 40 MILLIGRAM
     Route: 048
  7. ENTOCORT [Concomitant]
     Active Substance: BUDESONIDE
     Dosage: 3 MILLIGRAM
     Route: 048
  8. SYNTHROID [Concomitant]
     Active Substance: LEVOTHYROXINE SODIUM
     Dosage: 75 MICROGRAM
  9. FUROSEMIDE [Concomitant]
     Active Substance: FUROSEMIDE
     Dosage: 40 MILLIGRAM
     Route: 048
  10. DOMPERIDONE [Concomitant]
     Active Substance: DOMPERIDONE
     Dosage: 10 MILLIGRAM
     Route: 048

REACTIONS (11)
  - Death [Fatal]
  - Crohn^s disease [Unknown]
  - Oedema peripheral [Recovering/Resolving]
  - Femur fracture [Not Recovered/Not Resolved]
  - Gastrointestinal fungal infection [Not Recovered/Not Resolved]
  - Malaise [Not Recovered/Not Resolved]
  - Hypophagia [Not Recovered/Not Resolved]
  - Malnutrition [Unknown]
  - Infection [Not Recovered/Not Resolved]
  - Decreased appetite [Recovering/Resolving]
  - Fall [Not Recovered/Not Resolved]

NARRATIVE: CASE EVENT DATE: 20221201
